FAERS Safety Report 17023467 (Version 2)
Quarter: 2025Q3

REPORT INFORMATION
  Report Type: Spontaneous
  Country: EU (occurrence: EU)
  Receive Date: 20191112
  Receipt Date: 20250823
  Transmission Date: 20251021
  Serious: Yes (Other)
  Sender: AUROBINDO
  Company Number: AU-002147023-NVSC2019AU001364

PATIENT
  Age: 39 Year
  Sex: Male

DRUGS (4)
  1. RAMIPRIL [Suspect]
     Active Substance: RAMIPRIL
     Indication: Focal segmental glomerulosclerosis
     Dosage: 10 MILLIGRAM, ONCE A DAY
     Route: 065
  2. MYCOPHENOLIC ACID [Suspect]
     Active Substance: MYCOPHENOLIC ACID
     Indication: Focal segmental glomerulosclerosis
     Dosage: 1 GRAM, TWO TIMES A DAY, (2 GRAM)
     Route: 065
  3. FUROSEMIDE [Suspect]
     Active Substance: FUROSEMIDE
     Indication: Focal segmental glomerulosclerosis
     Dosage: 50 MILLIGRAM, ONCE A DAY
     Route: 065
  4. ATORVASTATIN [Suspect]
     Active Substance: ATORVASTATIN
     Indication: Focal segmental glomerulosclerosis
     Dosage: 20 MILLIGRAM, ONCE A DAY
     Route: 065

REACTIONS (5)
  - Proteinuria [Recovered/Resolved]
  - Nephrotic syndrome [Recovered/Resolved]
  - Renal impairment [Recovered/Resolved]
  - Therapeutic response decreased [Unknown]
  - Product use in unapproved indication [Unknown]
